FAERS Safety Report 25222778 (Version 1)
Quarter: 2025Q2

REPORT INFORMATION
  Report Type: Spontaneous
  Country: US (occurrence: US)
  Receive Date: 20250422
  Receipt Date: 20250422
  Transmission Date: 20250716
  Serious: No
  Sender: SANOFI AVENTIS
  Company Number: US-SA-2025SA114237

PATIENT
  Sex: Female
  Weight: 78.64 kg

DRUGS (3)
  1. DUPIXENT [Suspect]
     Active Substance: DUPILUMAB
     Indication: Dermatitis atopic
     Dosage: 300 MG, QOW
     Route: 058
  2. WEGOVY [Concomitant]
     Active Substance: SEMAGLUTIDE
  3. ESCITALOPRAM OXALATE [Concomitant]
     Active Substance: ESCITALOPRAM OXALATE

REACTIONS (4)
  - Rebound atopic dermatitis [Unknown]
  - Skin fissures [Unknown]
  - Skin haemorrhage [Unknown]
  - Product dose omission issue [Unknown]
